FAERS Safety Report 12110957 (Version 1)
Quarter: 2016Q1

REPORT INFORMATION
  Report Type: Spontaneous
  Country: US (occurrence: US)
  Receive Date: 20160224
  Receipt Date: 20160224
  Transmission Date: 20160526
  Serious: No
  Sender: FDA-Public Use
  Company Number: US-JAZZ-2015-US-004272

PATIENT
  Age: 74 Year
  Sex: Male

DRUGS (5)
  1. PRIALT [Suspect]
     Active Substance: ZICONOTIDE ACETATE
     Dosage: 0.006 ?G, QH
     Route: 037
     Dates: start: 20150319, end: 20150413
  2. PRIALT [Suspect]
     Active Substance: ZICONOTIDE ACETATE
     Dosage: 0.065 ?G, QH
     Route: 037
     Dates: start: 20150223, end: 20150225
  3. PRIALT [Suspect]
     Active Substance: ZICONOTIDE ACETATE
     Dosage: 0.054 ?G, QH
     Route: 037
     Dates: start: 20150225, end: 20150319
  4. PRIALT [Suspect]
     Active Substance: ZICONOTIDE ACETATE
     Indication: SPINAL PAIN
     Dosage: 0.052 ?G, QH
     Route: 037
     Dates: start: 20150217, end: 20150223
  5. OXYCODONE HYDROCHLORIDE. [Concomitant]
     Active Substance: OXYCODONE HYDROCHLORIDE
     Dosage: 15 MG, QD
     Route: 048

REACTIONS (8)
  - Chills [Recovering/Resolving]
  - Constipation [Recovering/Resolving]
  - Malaise [Recovering/Resolving]
  - Nausea [Recovering/Resolving]
  - Dry mouth [Recovering/Resolving]
  - Hypoaesthesia [Recovering/Resolving]
  - Overdose [Recovering/Resolving]
  - Drug withdrawal syndrome [Recovering/Resolving]

NARRATIVE: CASE EVENT DATE: 201502
